FAERS Safety Report 5227605-2 (Version None)
Quarter: 2007Q1

REPORT INFORMATION
  Report Type: 
  Country: None (occurrence: None)
  Receive Date: 20070202
  Receipt Date: 20070124
  Transmission Date: 20070707
  Serious: Yes (Hospitalization)
  Sender: FDA-Public Use
  Company Number: HQWYE444124JAN07

PATIENT
  Age: 77 Year
  Sex: Male

DRUGS (4)
  1. CORDARONE [Suspect]
     Indication: SUPRAVENTRICULAR EXTRASYSTOLES
     Route: 048
     Dates: start: 20030101, end: 20061122
  2. HYTACAND [Suspect]
     Indication: HYPERTENSION
     Dosage: 1 UNIT EVERY 1 DAY
     Route: 048
     Dates: end: 20061122
  3. TEMESTA [Concomitant]
     Dosage: 1 MG
     Route: 048
     Dates: end: 20061122
  4. VASTEN [Suspect]
     Dosage: 1 UNIT EVERY 1 DAY
     Route: 048
     Dates: end: 20061122

REACTIONS (5)
  - CRYPTOGENIC ORGANISING PNEUMONIA [None]
  - GENERAL PHYSICAL HEALTH DETERIORATION [None]
  - PULMONARY HYPERTENSION [None]
  - RESPIRATORY FAILURE [None]
  - WEIGHT DECREASED [None]
